FAERS Safety Report 7411778-7 (Version None)
Quarter: 2011Q2

REPORT INFORMATION
  Report Type: 
  Country: None (occurrence: None)
  Receive Date: 20110413
  Receipt Date: 20110113
  Transmission Date: 20111010
  Serious: Yes (Other)
  Sender: FDA-Public Use
  Company Number: US-BRISTOL-MYERS SQUIBB COMPANY-15488349

PATIENT
  Age: 31 Year
  Sex: Male

DRUGS (4)
  1. ZOFRAN [Concomitant]
     Indication: PREMEDICATION
  2. BENADRYL [Concomitant]
     Indication: PREMEDICATION
  3. ERBITUX [Suspect]
     Indication: COLON CANCER
     Route: 042
  4. DECADRON [Concomitant]
     Indication: PREMEDICATION

REACTIONS (1)
  - RESPIRATORY DISTRESS [None]
